FAERS Safety Report 7712002-8 (Version None)
Quarter: 2011Q3

REPORT INFORMATION
  Report Type: 
  Country: None (occurrence: None)
  Receive Date: 20110826
  Receipt Date: 20110824
  Transmission Date: 20111222
  Serious: Yes (Hospitalization, Other)
  Sender: FDA-Public Use
  Company Number: JP-PFIZER INC-2011196731

PATIENT
  Age: 83 Year
  Sex: Male

DRUGS (10)
  1. ARICEPT [Suspect]
     Indication: RESTLESSNESS
     Dosage: 5 MG, 1X/DAY
     Dates: start: 20110301
  2. ARICEPT [Suspect]
     Indication: MEMORY IMPAIRMENT
  3. ARICEPT [Suspect]
     Indication: DEPENDENCE
  4. NORVASC [Suspect]
  5. TICLOPIDINE HCL [Concomitant]
  6. MOHRUS TAPE [Concomitant]
  7. LOSARTAN POTASSIUM [Concomitant]
  8. DIOVAN [Concomitant]
  9. CEPHADOL [Concomitant]
  10. RIZE [Concomitant]

REACTIONS (4)
  - GAIT DISTURBANCE [None]
  - MUSCULOSKELETAL PAIN [None]
  - HEADACHE [None]
  - BLOOD PRESSURE DECREASED [None]
